FAERS Safety Report 8773399 (Version 1)
Quarter: 2012Q4

REPORT INFORMATION
  Report Type: 
  Country: DE (occurrence: DE)
  Receive Date: 20120907
  Receipt Date: 20120907
  Transmission Date: 20130627
  Serious: Yes (Hospitalization)
  Sender: FDA-Public Use
  Company Number: DE-JNJFOC-20120901969

PATIENT
  Age: 79 Year
  Sex: Male
  Weight: 63 kg

DRUGS (5)
  1. PALEXIA [Suspect]
     Indication: PAIN
     Route: 048
     Dates: start: 20110728, end: 20120313
  2. SIMVASTATIN [Concomitant]
     Indication: PRODUCT USED FOR UNKNOWN INDICATION
     Route: 048
  3. ZOLPIDEM [Concomitant]
     Indication: PRODUCT USED FOR UNKNOWN INDICATION
     Route: 048
  4. AMLODIPINE [Concomitant]
     Indication: PRODUCT USED FOR UNKNOWN INDICATION
     Route: 048
     Dates: start: 201111
  5. HYDROCHLOROTHIAZIDE [Concomitant]
     Indication: PRODUCT USED FOR UNKNOWN INDICATION
     Route: 048

REACTIONS (5)
  - Ataxia [Recovered/Resolved]
  - Confusional state [Recovered/Resolved]
  - Disorientation [Recovered/Resolved]
  - Gait disturbance [Recovered/Resolved]
  - Restlessness [Recovered/Resolved]
